FAERS Safety Report 4551581-9 (Version None)
Quarter: 2005Q1

REPORT INFORMATION
  Report Type: 
  Country: None (occurrence: None)
  Receive Date: 20050112
  Receipt Date: 20041230
  Transmission Date: 20050727
  Serious: Yes (Other)
  Sender: FDA-Public Use
  Company Number: 2005001586

PATIENT
  Age: 60 Year
  Sex: Female
  Weight: 62.1428 kg

DRUGS (6)
  1. CELEBREX [Suspect]
     Indication: ARTHRITIS
     Dosage: 400 MG (200 MG, 2 IN 1 D), ORAL
     Route: 048
     Dates: start: 20041022, end: 20041024
  2. CELEBREX [Suspect]
     Indication: FIBROMYALGIA
     Dosage: 400 MG (200 MG, 2 IN 1 D), ORAL
     Route: 048
     Dates: start: 20041022, end: 20041024
  3. ATORVASTATIN (ATORVASTATIN) [Concomitant]
  4. PANTOPRAZOLE (PANTOPRAZOLE) [Concomitant]
  5. LEVOTHYROIXINE SODIUM (LEVOTHYROXINE SODIUM) [Concomitant]
  6. ZOLPIDEM TARTRATE [Concomitant]

REACTIONS (9)
  - APHAGIA [None]
  - CHOKING [None]
  - DEPRESSION [None]
  - DYSPNOEA [None]
  - NASOPHARYNGITIS [None]
  - OROPHARYNGEAL SWELLING [None]
  - PHARMACEUTICAL PRODUCT COMPLAINT [None]
  - RASH PRURITIC [None]
  - RASH SCALY [None]
